FAERS Safety Report 11781748 (Version 1)
Quarter: 2015Q4

REPORT INFORMATION
  Report Type: Spontaneous
  Country: US (occurrence: US)
  Receive Date: 20151126
  Receipt Date: 20151126
  Transmission Date: 20160305
  Serious: Yes (Hospitalization, Other)
  Sender: FDA-Public Use
  Company Number: US-ELI_LILLY_AND_COMPANY-US201511006071

PATIENT
  Age: 55 Year
  Sex: Male

DRUGS (2)
  1. EFFIENT [Suspect]
     Active Substance: PRASUGREL HYDROCHLORIDE
     Indication: CORONARY ARTERIAL STENT INSERTION
     Dosage: 10 MG, QD
     Route: 048
     Dates: start: 201510
  2. ASPIRIN                            /00002701/ [Concomitant]
     Active Substance: ASPIRIN
     Dosage: UNK, UNKNOWN
     Route: 065

REACTIONS (8)
  - Vein collapse [Unknown]
  - Dizziness [Unknown]
  - Laceration [Unknown]
  - Hypercoagulation [Unknown]
  - Contusion [Recovered/Resolved]
  - Myocardial necrosis marker increased [Unknown]
  - Procedural complication [Unknown]
  - Myalgia [Recovered/Resolved]

NARRATIVE: CASE EVENT DATE: 201510
